FAERS Safety Report 19039379 (Version 8)
Quarter: 2022Q1

REPORT INFORMATION
  Report Type: Report from Study
  Country: US (occurrence: US)
  Receive Date: 20210322
  Receipt Date: 20220317
  Transmission Date: 20220423
  Serious: Yes (Hospitalization, Other)
  Sender: FDA-Public Use
  Company Number: US-TAKEDA-2021TUS017224

PATIENT
  Sex: Female

DRUGS (3)
  1. HUMAN IMMUNOGLOBULIN G [Suspect]
     Active Substance: HUMAN IMMUNOGLOBULIN G
     Indication: Primary immunodeficiency syndrome
     Dosage: 48 GRAM
     Route: 042
  2. HUMAN IMMUNOGLOBULIN G [Suspect]
     Active Substance: HUMAN IMMUNOGLOBULIN G
     Dosage: 16 GRAM
     Route: 058
  3. PFIZER-BIONTECH COVID-19 VACCINE [Suspect]
     Active Substance: TOZINAMERAN
     Indication: Product used for unknown indication
     Route: 065

REACTIONS (15)
  - COVID-19 [Unknown]
  - Leukaemia [Unknown]
  - COVID-19 immunisation [Unknown]
  - Insomnia [Unknown]
  - Infusion site extravasation [Unknown]
  - Migraine [Unknown]
  - Poor venous access [Unknown]
  - Food allergy [Unknown]
  - Dry eye [Unknown]
  - Depressed mood [Unknown]
  - Urinary tract infection [Unknown]
  - Feeling abnormal [Unknown]
  - Infusion site bruising [Unknown]
  - Headache [Unknown]
  - Needle issue [Recovered/Resolved]
